FAERS Safety Report 8221193-4 (Version None)
Quarter: 2012Q1

REPORT INFORMATION
  Report Type: 
  Country: None (occurrence: None)
  Receive Date: 20120320
  Receipt Date: 20120308
  Transmission Date: 20120608
  Serious: Yes (Hospitalization, Other)
  Sender: FDA-Public Use
  Company Number: PHHY2011US15680

PATIENT
  Sex: Male
  Weight: 68.027 kg

DRUGS (13)
  1. TASIGNA [Suspect]
     Indication: CHRONIC MYELOID LEUKAEMIA
     Dosage: 200 MG, BID
     Dates: start: 20100611
  2. NUCYNTA [Concomitant]
  3. METFORMIN HCL [Concomitant]
     Indication: DIABETES MELLITUS
     Dosage: 150 MG DAILY
  4. GLIMEPIRIDE [Concomitant]
     Indication: DIABETES MELLITUS
     Dosage: 2 MG DAILY
  5. BENICAR HCT [Concomitant]
     Indication: HYPERTENSION
  6. TASIGNA [Suspect]
     Dosage: 2 CAPSULES FOR EVERY 12 HOURS
     Route: 048
     Dates: start: 20100817
  7. NEURONTIN [Concomitant]
  8. TRIBENZOR [Concomitant]
  9. CRESTOR [Concomitant]
     Indication: BLOOD CHOLESTEROL INCREASED
     Dosage: 5 MG DAILY
  10. SPIRIVA [Concomitant]
  11. GUANFACINE HYDROCHLORIDE [Concomitant]
  12. TASIGNA [Suspect]
     Indication: NEOPLASM MALIGNANT
     Dosage: 400 MG, Q12H
     Route: 048
     Dates: start: 20100814
  13. DUETACT [Concomitant]

REACTIONS (11)
  - ANGINA PECTORIS [None]
  - DYSPNOEA [None]
  - BACK PAIN [None]
  - OEDEMA PERIPHERAL [None]
  - HERPES ZOSTER [None]
  - CHRONIC OBSTRUCTIVE PULMONARY DISEASE [None]
  - IMMUNE SYSTEM DISORDER [None]
  - COUGH [None]
  - RASH [None]
  - CARDIAC FAILURE CONGESTIVE [None]
  - CAROTID ARTERY OCCLUSION [None]
